FAERS Safety Report 6501762-X (Version None)
Quarter: 2009Q4

REPORT INFORMATION
  Report Type: 
  Country: None (occurrence: None)
  Receive Date: 20091216
  Receipt Date: 20091214
  Transmission Date: 20100525
  Serious: Yes (Other)
  Sender: FDA-Public Use
  Company Number: DE-PFIZER INC-2009284303

PATIENT
  Age: 46 Year
  Sex: Female

DRUGS (1)
  1. DEPO-CLINOVIR [Suspect]
     Indication: CONTRACEPTION
     Dosage: 1 DF, EVERY 3 MONTHS

REACTIONS (3)
  - ABDOMINAL PAIN UPPER [None]
  - CARDIOVASCULAR DISORDER [None]
  - NAUSEA [None]
